FAERS Safety Report 23980739 (Version 1)
Quarter: 2024Q2

REPORT INFORMATION
  Report Type: Spontaneous
  Country: US (occurrence: US)
  Receive Date: 20240617
  Receipt Date: 20240617
  Transmission Date: 20240716
  Serious: Yes (Other)
  Sender: FDA-Public Use
  Company Number: US-AMGEN-USASP2024115007

PATIENT
  Age: 28 Year
  Sex: Male

DRUGS (17)
  1. PREDNISONE [Suspect]
     Active Substance: PREDNISONE
     Indication: B-cell type acute leukaemia
     Dosage: UNK
     Route: 065
  2. CYTARABINE [Suspect]
     Active Substance: CYTARABINE
     Indication: B-cell type acute leukaemia
     Dosage: UNK
     Route: 042
  3. CYTARABINE [Suspect]
     Active Substance: CYTARABINE
     Dosage: UNK
     Route: 029
  4. CYTARABINE [Suspect]
     Active Substance: CYTARABINE
     Dosage: UNK, INTRA-OMMAYA (IO)
     Route: 065
  5. METHOTREXATE [Suspect]
     Active Substance: METHOTREXATE
     Indication: B-cell type acute leukaemia
     Dosage: UNK
     Route: 042
  6. METHOTREXATE [Suspect]
     Active Substance: METHOTREXATE
     Dosage: UNK
     Route: 029
  7. METHOTREXATE [Suspect]
     Active Substance: METHOTREXATE
     Dosage: UNK, INTRA-OMMAYA (IO)
     Route: 065
  8. METHOTREXATE [Suspect]
     Active Substance: METHOTREXATE
     Dosage: UNK
     Route: 048
  9. THIOGUANINE [Suspect]
     Active Substance: THIOGUANINE
     Indication: B-cell type acute leukaemia
     Dosage: UNK
     Route: 065
  10. DOXORUBICIN [Suspect]
     Active Substance: DOXORUBICIN
     Indication: B-cell type acute leukaemia
     Dosage: UNK
     Route: 065
  11. VINCRISTINE [Suspect]
     Active Substance: VINCRISTINE
     Indication: B-cell type acute leukaemia
     Dosage: UNK
     Route: 065
  12. HYDROXYUREA [Suspect]
     Active Substance: HYDROXYUREA
     Indication: B-cell type acute leukaemia
     Dosage: UNK
     Route: 065
  13. DACTINOMYCIN [Suspect]
     Active Substance: DACTINOMYCIN
     Indication: B-cell type acute leukaemia
     Dosage: UNK
     Route: 065
  14. ASPARAGINASE [Suspect]
     Active Substance: ASPARAGINASE
     Indication: B-cell type acute leukaemia
     Dosage: UNK
     Route: 065
  15. CARMUSTINE [Suspect]
     Active Substance: CARMUSTINE
     Indication: B-cell type acute leukaemia
     Dosage: UNK
     Route: 065
  16. CYCLOPHOSPHAMIDE [Suspect]
     Active Substance: CYCLOPHOSPHAMIDE
     Indication: B-cell type acute leukaemia
     Dosage: UNK
     Route: 065
  17. CYCLOPHOSPHAMIDE [Suspect]
     Active Substance: CYCLOPHOSPHAMIDE
     Dosage: 44.9 GRAM PER SQUARE METRE
     Route: 065

REACTIONS (1)
  - Pleuroparenchymal fibroelastosis [Unknown]

NARRATIVE: CASE EVENT DATE: 20230101
